FAERS Safety Report 12182506 (Version 4)
Quarter: 2016Q3

REPORT INFORMATION
  Report Type: Spontaneous
  Country: JP (occurrence: JP)
  Receive Date: 20160316
  Receipt Date: 20160924
  Transmission Date: 20161109
  Serious: Yes (Life-Threatening, Hospitalization)
  Sender: FDA-Public Use
  Company Number: JP-AMGEN-JPNSP2016032781

PATIENT
  Age: 72 Year
  Sex: Female
  Weight: 45 kg

DRUGS (19)
  1. ENDOXAN                            /00021101/ [Suspect]
     Active Substance: CYCLOPHOSPHAMIDE
     Indication: BREAST CANCER
     Dosage: 485 MG, 1X/3WEEKS
     Route: 041
     Dates: start: 20151007, end: 20151007
  2. G-LASTA [Suspect]
     Active Substance: PEGFILGRASTIM
     Dosage: 3.6 MG, UNK
     Route: 058
     Dates: start: 20151030, end: 20151030
  3. 5-FU                               /00098801/ [Suspect]
     Active Substance: FLUOROURACIL
     Indication: BREAST CANCER
     Dosage: 485 MG, 1X/3WEEKS
     Route: 041
     Dates: start: 20151007, end: 20151007
  4. SENNOSIDE                          /00571901/ [Concomitant]
     Active Substance: SENNOSIDES A AND B
     Indication: BREAST CANCER
     Dosage: 24 MG, 2~3DAYS
     Route: 048
     Dates: start: 20151009, end: 20151030
  5. REBAMIPIDE [Concomitant]
     Active Substance: REBAMIPIDE
     Indication: GASTRITIS
     Dosage: 100 MG, UNK
     Route: 048
  6. ENDOXAN                            /00021101/ [Suspect]
     Active Substance: CYCLOPHOSPHAMIDE
     Dosage: 485 MG, 1X/3WEEKS
     Route: 041
     Dates: start: 20151028, end: 20151028
  7. BAYASPIRIN [Concomitant]
     Active Substance: ASPIRIN
     Indication: HYPERTENSION
     Dosage: 100 MG, UNK
     Route: 048
  8. PRIMPERAN [Concomitant]
     Active Substance: METOCLOPRAMIDE HYDROCHLORIDE
     Indication: BREAST CANCER
     Dosage: 15 MG, 2~3DAYS
     Route: 048
     Dates: start: 20151009, end: 20151030
  9. DECADRON [Concomitant]
     Active Substance: DEXAMETHASONE
     Indication: BREAST CANCER
     Dosage: UNK, 1X/3WEEKS
     Route: 042
     Dates: start: 20151007, end: 20151028
  10. 5-FU                               /00098801/ [Suspect]
     Active Substance: FLUOROURACIL
     Dosage: 485 MG, 1X/3WEEKS
     Route: 041
     Dates: start: 20151028, end: 20151028
  11. EPIRUBICIN HYDROCHLORIDE. [Suspect]
     Active Substance: EPIRUBICIN HYDROCHLORIDE
     Dosage: 98 MG, 1X/3WEEKS
     Route: 041
     Dates: start: 20151028, end: 20151028
  12. ALOXI [Concomitant]
     Active Substance: PALONOSETRON HYDROCHLORIDE
     Indication: BREAST CANCER
     Dosage: 0.75 MG, 1X/3WEEKS
     Route: 042
     Dates: start: 20151007, end: 20151028
  13. G-LASTA [Suspect]
     Active Substance: PEGFILGRASTIM
     Indication: COLONY STIMULATING FACTOR PROPHYLAXIS
     Dosage: 3.6 MG, UNK
     Route: 058
     Dates: start: 20151009, end: 20151009
  14. EPIRUBICIN HYDROCHLORIDE. [Suspect]
     Active Substance: EPIRUBICIN HYDROCHLORIDE
     Indication: BREAST CANCER
     Dosage: 98 MG, 1X/3WEEKS
     Route: 041
     Dates: start: 20151007, end: 20151007
  15. VALACICLOVIR [Suspect]
     Active Substance: VALACYCLOVIR HYDROCHLORIDE
     Indication: PRODUCT USED FOR UNKNOWN INDICATION
     Dosage: UNK
     Route: 048
  16. EMEND [Concomitant]
     Active Substance: APREPITANT
     Indication: BREAST CANCER
     Dosage: 205 MG, 1X/3WEEKS
     Route: 048
     Dates: start: 20151009, end: 20151030
  17. BLOPRESS [Concomitant]
     Active Substance: CANDESARTAN CILEXETIL
     Indication: HYPERTENSION
     Dosage: 8 MG, UNK
     Route: 048
  18. ROXATIDINE ACETATE HYDROCHLORIDE [Concomitant]
     Active Substance: ROXATIDINE ACETATE HYDROCHLORIDE
     Dosage: 75 MG, UNK
     Route: 048
  19. DECADRON [Concomitant]
     Active Substance: DEXAMETHASONE
     Indication: BREAST CANCER
     Dosage: UNK
     Route: 048
     Dates: start: 20151007, end: 20151028

REACTIONS (2)
  - Respiratory failure [Not Recovered/Not Resolved]
  - Pneumonitis [Recovering/Resolving]

NARRATIVE: CASE EVENT DATE: 20151116
